FAERS Safety Report 8468828-9 (Version None)
Quarter: 2012Q2

REPORT INFORMATION
  Report Type: 
  Country: None (occurrence: None)
  Receive Date: 20120626
  Receipt Date: 20120615
  Transmission Date: 20120825
  Serious: Yes (Other)
  Sender: FDA-Public Use
  Company Number: US-PERRIGO-12US005289

PATIENT
  Sex: Male
  Weight: 40.816 kg

DRUGS (1)
  1. CETIRIZINE HCL [Suspect]
     Indication: PRODUCT USED FOR UNKNOWN INDICATION
     Dosage: UNK, AS DIRECTED
     Route: 048
     Dates: start: 20120531, end: 20120531

REACTIONS (1)
  - CONVULSION [None]
